FAERS Safety Report 25123060 (Version 5)
Quarter: 2025Q2

REPORT INFORMATION
  Report Type: Report from Study
  Country: US (occurrence: US)
  Receive Date: 20250326
  Receipt Date: 20250527
  Transmission Date: 20250717
  Serious: Yes (Hospitalization)
  Sender: ABBVIE
  Company Number: US-ABBVIE-6191065

PATIENT
  Age: 24 Year
  Sex: Female
  Weight: 51 kg

DRUGS (22)
  1. HUMIRA [Suspect]
     Active Substance: ADALIMUMAB
     Indication: Hidradenitis
     Dosage: DOSE FORM- SOLUTION FOR INJECTION IN PRE-FILLED PEN
     Route: 058
     Dates: start: 20230208
  2. HUMIRA [Suspect]
     Active Substance: ADALIMUMAB
     Dosage: DOSE FORM- SOLUTION FOR INJECTION IN PRE-FILLED PEN
     Route: 058
     Dates: start: 20220928
  3. ELIQUIS [Concomitant]
     Active Substance: APIXABAN
     Indication: Cerebral venous sinus thrombosis
  4. LACOSAMIDE [Concomitant]
     Active Substance: LACOSAMIDE
     Indication: Cerebral venous sinus thrombosis
  5. CRYSELLE [Concomitant]
     Active Substance: ETHINYL ESTRADIOL\NORGESTREL
     Indication: Blood oestrogen abnormal
     Route: 048
     Dates: start: 20240427, end: 20250307
  6. CLINDAMYCIN [Concomitant]
     Active Substance: CLINDAMYCIN
     Indication: Hidradenitis
     Dates: start: 20210518
  7. Vitamins B-12 [Concomitant]
     Indication: Anaemia
  8. BENZOYL PEROXIDE [Concomitant]
     Active Substance: BENZOYL PEROXIDE
     Indication: Hidradenitis
     Dates: start: 20220928
  9. LEVOMEFOLIC ACID [Concomitant]
     Active Substance: LEVOMEFOLIC ACID
     Indication: Anaemia vitamin B12 deficiency
     Dates: start: 20200501
  10. Azelastine/Flutic [Concomitant]
     Indication: Hypersensitivity
  11. VITAMIN B12 [Concomitant]
     Active Substance: CYANOCOBALAMIN
     Indication: Anaemia vitamin B12 deficiency
     Dates: start: 20200501
  12. VITAMIN D3 [Concomitant]
     Active Substance: CHOLECALCIFEROL
     Indication: Vitamin D deficiency
     Dates: start: 20181018
  13. VITAMIN A [Concomitant]
     Active Substance: VITAMIN A
     Indication: Immune system disorder
     Dates: start: 20230808, end: 20250324
  14. XYZAL [Concomitant]
     Active Substance: LEVOCETIRIZINE DIHYDROCHLORIDE
     Indication: Hypersensitivity
     Dates: start: 20230301
  15. LEVOMEFOLATE CALCIUM [Concomitant]
     Active Substance: LEVOMEFOLATE CALCIUM
     Indication: Anaemia
  16. OMEPRAZOLE [Concomitant]
     Active Substance: OMEPRAZOLE
     Indication: Gastrooesophageal reflux disease
     Dates: start: 20210907
  17. ZINC CITRATE [Concomitant]
     Active Substance: ZINC CITRATE
     Indication: Immune system disorder
     Dates: start: 20240501
  18. MIRALAX [Concomitant]
     Active Substance: POLYETHYLENE GLYCOL 3350
     Indication: Constipation
  19. OLOPATADINE [Concomitant]
     Active Substance: OLOPATADINE
     Indication: Hypersensitivity
     Dosage: 0.1% OPHTH SOLN 5ML INSTILLED IN EYE
     Dates: start: 20240201
  20. TRI-SPRINTEC [Concomitant]
     Active Substance: ETHINYL ESTRADIOL\NORGESTIMATE
     Indication: Blood oestrogen
  21. Metamucil Fiber Gummies [Concomitant]
     Indication: Product used for unknown indication
  22. Culturelle Probiotics [Concomitant]
     Indication: Dyspepsia

REACTIONS (7)
  - Cerebral thrombosis [Not Recovered/Not Resolved]
  - Rubulavirus test positive [Recovered/Resolved]
  - Productive cough [Recovered/Resolved]
  - Vomiting [Recovered/Resolved]
  - Headache [Recovering/Resolving]
  - Somnolence [Unknown]
  - Blood oestrogen increased [Unknown]

NARRATIVE: CASE EVENT DATE: 20250101
